FAERS Safety Report 9466177 (Version 1)
Quarter: 2013Q3

REPORT INFORMATION
  Report Type: Spontaneous
  Country: US (occurrence: None)
  Receive Date: 20130816
  Receipt Date: 20130816
  Transmission Date: 20140515
  Serious: Yes (Hospitalization, Disabling)
  Sender: FDA-Public Use
  Company Number: None

PATIENT
  Age: 61 Year
  Sex: Female
  Weight: 59.88 kg

DRUGS (1)
  1. LEVOFLOXACIN [Suspect]
     Indication: SINUSITIS
     Dosage: ONE TABLET EVERY DAY  ONCE DAILY  TAKEN BY MOUTH
     Route: 048
     Dates: start: 20130414, end: 20130418

REACTIONS (2)
  - Meniscus injury [None]
  - Joint injury [None]
